FAERS Safety Report 10933749 (Version 2)
Quarter: 2015Q2

REPORT INFORMATION
  Report Type: Report from Study
  Country: US (occurrence: US)
  Receive Date: 20150320
  Receipt Date: 20150403
  Transmission Date: 20150821
  Serious: Yes (Hospitalization)
  Sender: FDA-Public Use
  Company Number: US-BIOGENIDEC-2015BI035945

PATIENT
  Sex: Male
  Weight: 93 kg

DRUGS (14)
  1. DALFAMPRIDINE [Concomitant]
     Active Substance: DALFAMPRIDINE
     Route: 048
  2. VENLAFAXINE XR [Concomitant]
     Active Substance: VENLAFAXINE HYDROCHLORIDE
     Route: 048
  3. TYSABRI [Suspect]
     Active Substance: NATALIZUMAB
     Indication: MULTIPLE SCLEROSIS
     Dates: end: 201502
  4. DIAZEPAM. [Concomitant]
     Active Substance: DIAZEPAM
     Route: 048
  5. OXYBUTYNIN XL [Concomitant]
     Active Substance: OXYBUTYNIN CHLORIDE
     Route: 048
  6. TYSABRI [Suspect]
     Active Substance: NATALIZUMAB
     Indication: MULTIPLE SCLEROSIS
     Route: 042
     Dates: end: 201412
  7. BISACODYL. [Concomitant]
     Active Substance: BISACODYL
     Route: 048
  8. CLOPIDOGREL [Concomitant]
     Active Substance: CLOPIDOGREL BISULFATE
     Route: 048
  9. HYDROCODONE BITARTRATE AND ACETAMINOPHEN [Concomitant]
     Active Substance: ACETAMINOPHEN\HYDROCODONE BITARTRATE
     Route: 048
  10. ATORVASTATIN [Concomitant]
     Active Substance: ATORVASTATIN
     Route: 048
  11. TUSSIONEX PENNKINETIC [Concomitant]
     Active Substance: CHLORPHENIRAMINE\HYDROCODONE
     Indication: COUGH
     Route: 048
  12. ASPIRIN. [Concomitant]
     Active Substance: ASPIRIN
     Route: 048
  13. DESVENLAFAXINE ER [Concomitant]
     Route: 048
  14. AMBIEN CR [Concomitant]
     Active Substance: ZOLPIDEM TARTRATE
     Route: 048

REACTIONS (3)
  - Ataxia [Not Recovered/Not Resolved]
  - Fall [Unknown]
  - Drug ineffective [Unknown]
